FAERS Safety Report 23946641 (Version 2)
Quarter: 2024Q3

REPORT INFORMATION
  Report Type: Spontaneous
  Country: US (occurrence: US)
  Receive Date: 20240606
  Receipt Date: 20240911
  Transmission Date: 20241017
  Serious: Yes (Other)
  Sender: BAYER
  Company Number: US-BAYER-2024A081517

PATIENT
  Age: 24 Year
  Sex: Male

DRUGS (2)
  1. JIVI [Suspect]
     Active Substance: DAMOCTOCOG ALFA PEGOL
     Indication: Factor VIII deficiency
     Dosage: 3200 U, QOD
     Route: 042
     Dates: start: 202307
  2. JIVI [Suspect]
     Active Substance: DAMOCTOCOG ALFA PEGOL
     Indication: Factor VIII deficiency
     Dosage: 4 DF FOR A KIDNEY BLEED
     Route: 042
     Dates: start: 202405, end: 202405

REACTIONS (1)
  - Renal haemorrhage [Recovered/Resolved]

NARRATIVE: CASE EVENT DATE: 20240517
